FAERS Safety Report 25007783 (Version 2)
Quarter: 2025Q2

REPORT INFORMATION
  Report Type: Spontaneous
  Country: BR (occurrence: BR)
  Receive Date: 20250225
  Receipt Date: 20250510
  Transmission Date: 20250717
  Serious: Yes (Disabling, Other)
  Sender: NOVO NORDISK
  Company Number: BR-NOVOPROD-1371521

PATIENT
  Sex: Female
  Weight: 82 kg

DRUGS (2)
  1. NOVORAPID [Suspect]
     Active Substance: INSULIN ASPART
     Indication: Diabetes mellitus
     Dosage: 25 IU, TID (MORNING, LUNCH AND DINNER)
  2. NOVORAPID [Suspect]
     Active Substance: INSULIN ASPART

REACTIONS (1)
  - Disability [Unknown]
